FAERS Safety Report 6413548-5 (Version None)
Quarter: 2009Q4

REPORT INFORMATION
  Report Type: 
  Country: None (occurrence: None)
  Receive Date: 20091026
  Receipt Date: 20091021
  Transmission Date: 20100525
  Serious: Yes (Death)
  Sender: FDA-Public Use
  Company Number: PHEH2009US14254

PATIENT
  Age: 91 Year
  Sex: Female
  Weight: 49 kg

DRUGS (11)
  1. GLEEVEC [Suspect]
     Dosage: 100 MG, BID
     Route: 048
  2. ASPIRIN [Concomitant]
     Dosage: 81MG, UNK
  3. NOVOLOG [Concomitant]
  4. AMBIEN [Concomitant]
  5. TRIMETHOPRIM [Concomitant]
  6. FUROSEMIDE [Concomitant]
  7. NEURONTIN [Concomitant]
  8. CRESTOR [Concomitant]
  9. LOPRESSOR [Concomitant]
  10. SYNTHROID [Concomitant]
  11. ALTACE [Concomitant]

REACTIONS (1)
  - DEATH [None]
